FAERS Safety Report 5146789-8 (Version None)
Quarter: 2006Q4

REPORT INFORMATION
  Report Type: 
  Country: None (occurrence: None)
  Receive Date: 20061107
  Receipt Date: 20061107
  Transmission Date: 20070319
  Serious: Yes (Hospitalization)
  Sender: FDA-Public Use
  Company Number: None

PATIENT
  Age: 52 Year
  Sex: Female

DRUGS (4)
  1. ENALAPRIL MALEATE [Suspect]
     Indication: HYPERTENSION
     Dosage: 20MG DAILY PO
     Route: 048
  2. LEVOTHYROXINE SODIUM [Concomitant]
  3. HYDROCHLOROTHIAZIDE [Concomitant]
  4. PREDNISONE TAB [Concomitant]

REACTIONS (7)
  - ANGIONEUROTIC OEDEMA [None]
  - CHEST DISCOMFORT [None]
  - DYSPHAGIA [None]
  - DYSPNOEA [None]
  - PRURITUS [None]
  - RASH [None]
  - URTICARIA GENERALISED [None]
